FAERS Safety Report 15526616 (Version 1)
Quarter: 2018Q4

REPORT INFORMATION
  Report Type: Spontaneous
  Country: US (occurrence: US)
  Receive Date: 20181018
  Receipt Date: 20181018
  Transmission Date: 20190205
  Serious: No
  Sender: FDA-Public Use
  Company Number: US-LANNETT COMPANY, INC.-US-2018LAN000810

PATIENT

DRUGS (1)
  1. LEVOTHYROXINE SODIUM. [Suspect]
     Active Substance: LEVOTHYROXINE SODIUM
     Indication: HYPOTHYROIDISM
     Dosage: 25 ?G, QOD
     Route: 048
     Dates: start: 20180328, end: 20180623

REACTIONS (8)
  - Oral discomfort [Unknown]
  - Swollen tongue [Unknown]
  - Cough [Unknown]
  - Upper-airway cough syndrome [Unknown]
  - Feeling abnormal [Unknown]
  - Eating disorder [Unknown]
  - Lip swelling [Unknown]
  - Tongue discomfort [Unknown]
